FAERS Safety Report 21852090 (Version 2)
Quarter: 2024Q2

REPORT INFORMATION
  Report Type: Report from Study
  Country: CA (occurrence: CA)
  Receive Date: 20230112
  Receipt Date: 20240413
  Transmission Date: 20240715
  Serious: Yes (Death, Other)
  Sender: FDA-Public Use
  Company Number: CA-ABBVIE-4266650

PATIENT
  Age: 69 Year
  Sex: Male

DRUGS (1)
  1. LUPRON DEPOT [Suspect]
     Active Substance: LEUPROLIDE ACETATE
     Indication: Prostate cancer
     Dosage: THE LAST ADMIN DATE WAS IN 2022.
     Route: 030
     Dates: start: 20220502

REACTIONS (2)
  - Computerised tomogram head abnormal [Fatal]
  - Spinal cord compression [Unknown]

NARRATIVE: CASE EVENT DATE: 20221001
